FAERS Safety Report 20869784 (Version 2)
Quarter: 2022Q2

REPORT INFORMATION
  Report Type: Report from Study
  Country: FI (occurrence: FI)
  Receive Date: 20220525
  Receipt Date: 20220528
  Transmission Date: 20220720
  Serious: Yes (Disabling)
  Sender: FDA-Public Use
  Company Number: FI-AMGEN-FINCT2021167830

PATIENT
  Age: 57 Year
  Sex: Male
  Weight: 69.5 kg

DRUGS (18)
  1. CARFILZOMIB [Suspect]
     Active Substance: CARFILZOMIB
     Indication: Plasma cell myeloma
     Dosage: 102 MILLIGRAM
     Route: 042
     Dates: start: 20201029, end: 20210727
  2. LENALIDOMIDE [Suspect]
     Active Substance: LENALIDOMIDE
     Indication: Plasma cell myeloma
     Dosage: 15 MILLIGRAM
     Route: 065
     Dates: start: 20201029
  3. DEXAMETHASONE [Concomitant]
     Active Substance: DEXAMETHASONE
     Indication: Plasma cell myeloma
     Dosage: 40 MILLIGRAM
     Dates: start: 20201029, end: 20210726
  4. OXYCODONE HYDROCHLORIDE [Concomitant]
     Active Substance: OXYCODONE HYDROCHLORIDE
     Dosage: 5 MILLIGRAM
     Route: 048
     Dates: start: 20200914, end: 20211123
  5. CALCIUM\CHOLECALCIFEROL [Concomitant]
     Active Substance: CALCIUM\CHOLECALCIFEROL
     Dosage: 1 UNK
     Route: 048
     Dates: start: 20200803, end: 20211123
  6. OXAZEPAM [Concomitant]
     Active Substance: OXAZEPAM
     Dosage: 30 MILLIGRAM
     Route: 048
     Dates: start: 20190814, end: 20211123
  7. DESLORATADINE [Concomitant]
     Active Substance: DESLORATADINE
     Dosage: 5 MILLIGRAM
     Route: 048
     Dates: start: 20190624, end: 20211123
  8. HYPROMELLOSES [Concomitant]
     Active Substance: HYPROMELLOSES
     Dosage: 3.2 MILLIGRAM
     Route: 047
     Dates: start: 20200427, end: 20211123
  9. ACETAMINOPHEN [Concomitant]
     Active Substance: ACETAMINOPHEN
     Dosage: 500 MILLIGRAM
     Route: 048
     Dates: start: 20210220, end: 20211123
  10. SILDENAFIL [Concomitant]
     Active Substance: SILDENAFIL
     Dosage: 100 MILLIGRAM
     Route: 048
     Dates: start: 20210422, end: 20211123
  11. FILGRASTIM [Concomitant]
     Active Substance: FILGRASTIM
     Dosage: 30 UNK
     Route: 058
     Dates: start: 20201130, end: 20211130
  12. PANTOPRAZOLE SODIUM [Concomitant]
     Active Substance: PANTOPRAZOLE SODIUM
     Dosage: 40 MILLIGRAM
     Route: 048
     Dates: start: 20201230, end: 20211123
  13. POTASSIUM CHLORIDE [Concomitant]
     Active Substance: POTASSIUM CHLORIDE
     Dosage: 1 GRAM
     Route: 048
     Dates: start: 20200312, end: 20211123
  14. VITAMIN B12 [Concomitant]
     Active Substance: CYANOCOBALAMIN
     Dosage: 1 MILLIGRAM
     Route: 048
     Dates: start: 20200629, end: 20211123
  15. FINASTERIDE [Concomitant]
     Active Substance: FINASTERIDE
     Dosage: 1.25 MILLIGRAM
     Route: 048
     Dates: start: 20200420, end: 20211123
  16. SULFAMETHOXAZOLE\TRIMETHOPRIM [Concomitant]
     Active Substance: SULFAMETHOXAZOLE\TRIMETHOPRIM
     Dosage: 1 UNK
     Dates: start: 20201029, end: 20210816
  17. ACLOVIR [Concomitant]
     Dosage: 400 MILLIGRAM
     Dates: start: 20201029, end: 20210826
  18. PANTOPRAZOLE [Concomitant]
     Active Substance: PANTOPRAZOLE
     Dosage: 40 MILLIGRAM
     Dates: start: 20201029, end: 20211123

REACTIONS (1)
  - Parkinson^s disease [Not Recovered/Not Resolved]

NARRATIVE: CASE EVENT DATE: 20210719
